FAERS Safety Report 6412007-3 (Version None)
Quarter: 2009Q4

REPORT INFORMATION
  Report Type: 
  Country: None (occurrence: None)
  Receive Date: 20091020
  Receipt Date: 20091013
  Transmission Date: 20100525
  Serious: Yes (Other)
  Sender: FDA-Public Use
  Company Number: 2009EN000261

PATIENT
  Age: 3 Year
  Sex: Female
  Weight: 14.8 kg

DRUGS (10)
  1. ONCASPAR [Suspect]
     Indication: ACUTE LYMPHOCYTIC LEUKAEMIA
     Dosage: 2500 IU*M2;X1;IV ; X1;IV ; 3175 IU;X1;IV
     Route: 042
     Dates: start: 20090629, end: 20090629
  2. ONCASPAR [Suspect]
     Indication: ACUTE LYMPHOCYTIC LEUKAEMIA
     Dosage: 2500 IU*M2;X1;IV ; X1;IV ; 3175 IU;X1;IV
     Route: 042
     Dates: start: 20090807, end: 20090807
  3. ONCASPAR [Suspect]
     Indication: ACUTE LYMPHOCYTIC LEUKAEMIA
     Dosage: 2500 IU*M2;X1;IV ; X1;IV ; 3175 IU;X1;IV
     Route: 042
     Dates: start: 20090111
  4. DEXAMETHASONE [Suspect]
     Indication: ACUTE LYMPHOCYTIC LEUKAEMIA
     Dosage: 84 MG;BID;PO
     Route: 048
     Dates: start: 20090626, end: 20090716
  5. CYCLOPHOSPHAMIDE [Concomitant]
  6. CYTARABINE [Concomitant]
  7. DOXORUBICIN HCL [Concomitant]
  8. METHOTREXATE [Concomitant]
  9. THIOGUANINE [Concomitant]
  10. VINCRISTINE [Concomitant]

REACTIONS (4)
  - HIGH DENSITY LIPOPROTEIN INCREASED [None]
  - HYPERTRIGLYCERIDAEMIA [None]
  - LIPASE INCREASED [None]
  - LOW DENSITY LIPOPROTEIN INCREASED [None]
